FAERS Safety Report 10017125 (Version 1)
Quarter: 2014Q1

REPORT INFORMATION
  Report Type: Spontaneous
  Country: HK (occurrence: HK)
  Receive Date: 20140318
  Receipt Date: 20140318
  Transmission Date: 20141002
  Serious: Yes (Other)
  Sender: FDA-Public Use
  Company Number: HK-AMGEN-HKGSP2014018887

PATIENT
  Sex: Female

DRUGS (1)
  1. ENBREL [Suspect]
     Indication: ANKYLOSING SPONDYLITIS
     Dosage: 50 MG, WEEKLY
     Route: 065

REACTIONS (4)
  - Polyp [Unknown]
  - Inflammation [Unknown]
  - Purulent discharge [Unknown]
  - Pelvic pain [Unknown]
